FAERS Safety Report 24435791 (Version 5)
Quarter: 2025Q4

REPORT INFORMATION
  Report Type: Spontaneous
  Country: US (occurrence: US)
  Receive Date: 20241015
  Receipt Date: 20251016
  Transmission Date: 20260117
  Serious: Yes (Other)
  Sender: AMNEAL
  Company Number: US-AMNEAL PHARMACEUTICALS-2024-AMRX-03644

PATIENT

DRUGS (1)
  1. GLYCOPYRROLATE [Suspect]
     Active Substance: GLYCOPYRROLATE
     Indication: Product used for unknown indication
     Dosage: 0.4/2 MG/ML (2 ML PREFILLED SYRINGE)
     Route: 065

REACTIONS (3)
  - Device issue [Unknown]
  - Device leakage [Unknown]
  - No adverse event [Unknown]
